FAERS Safety Report 12574178 (Version 3)
Quarter: 2016Q3

REPORT INFORMATION
  Report Type: Spontaneous
  Country: DE (occurrence: DE)
  Receive Date: 20160720
  Receipt Date: 20160805
  Transmission Date: 20161109
  Serious: Yes (Hospitalization, Other)
  Sender: FDA-Public Use
  Company Number: DE-AMGEN-DEUSP2016092487

PATIENT
  Age: 48 Year
  Sex: Female
  Weight: 68 kg

DRUGS (7)
  1. AMLODIPINE AAA [Concomitant]
     Dosage: 5 MG, UNK
     Dates: start: 201505
  2. ENBREL [Suspect]
     Active Substance: ETANERCEPT
     Indication: RHEUMATOID ARTHRITIS
     Dosage: 50 MG, UNK
     Route: 065
     Dates: start: 201511
  3. IBUFLAM [Concomitant]
     Active Substance: IBUPROFEN
     Dosage: 600 UNK, UNK
  4. FOLSAN [Concomitant]
     Active Substance: FOLIC ACID
     Dosage: FOR YEARS
  5. AMLODIPINE [Concomitant]
     Active Substance: AMLODIPINE BESYLATE
     Dosage: 5 MG, UNK
     Dates: start: 201505
  6. BIVIOL [Concomitant]
     Active Substance: DESOGESTREL\ETHINYL ESTRADIOL
     Dosage: SINCE YEARS
  7. METHOTREXAT AL [Concomitant]
     Dosage: 7.5 MG, SINCE YEARS

REACTIONS (1)
  - Cerebrovascular accident [Unknown]

NARRATIVE: CASE EVENT DATE: 201607
